FAERS Safety Report 22030258 (Version 1)
Quarter: 2023Q1

REPORT INFORMATION
  Report Type: Spontaneous
  Country: US (occurrence: US)
  Receive Date: 20230223
  Receipt Date: 20230223
  Transmission Date: 20230417
  Serious: No
  Sender: FDA-Public Use
  Company Number: US-PRIMUS-2022-US-004947

PATIENT
  Age: 70 Year
  Sex: Male
  Weight: 89.36 kg

DRUGS (9)
  1. SERNIVO [Suspect]
     Active Substance: BETAMETHASONE DIPROPIONATE
     Indication: Product used for unknown indication
     Dosage: 2 WEEKS ON 2 WEEKS OFF APPLIED TO SCALP
     Route: 061
     Dates: start: 202109
  2. LISINOPRIL [Concomitant]
     Active Substance: LISINOPRIL
  3. METFORMIN [Concomitant]
     Active Substance: METFORMIN HYDROCHLORIDE
  4. NALOXEGOL [Concomitant]
     Active Substance: NALOXEGOL
  5. PRODON [Concomitant]
  6. TRAZODONE [Concomitant]
     Active Substance: TRAZODONE HYDROCHLORIDE
  7. EFFEXOR [Concomitant]
     Active Substance: VENLAFAXINE HYDROCHLORIDE
  8. ASPIRIN [Concomitant]
     Active Substance: ASPIRIN
  9. FISH OIL [Concomitant]
     Active Substance: FISH OIL

REACTIONS (4)
  - Dermatitis [Not Recovered/Not Resolved]
  - Intentional product misuse [Unknown]
  - Alopecia [Not Recovered/Not Resolved]
  - Off label use [Unknown]

NARRATIVE: CASE EVENT DATE: 20210901
